FAERS Safety Report 5141577-0 (Version None)
Quarter: 2006Q4

REPORT INFORMATION
  Report Type: 
  Country: None (occurrence: None)
  Receive Date: 20061030
  Receipt Date: 20061030
  Transmission Date: 20070319
  Serious: Yes (Other)
  Sender: FDA-Public Use
  Company Number: None

PATIENT
  Age: 34 Year
  Sex: Female
  Weight: 54.4316 kg

DRUGS (1)
  1. YASMIN [Suspect]
     Indication: CONTRACEPTION
     Dosage: MONTHLY PACKS ONE A DAY

REACTIONS (5)
  - CONTACT LENS COMPLICATION [None]
  - DRY EYE [None]
  - EYE DISORDER [None]
  - OCULAR DISCOMFORT [None]
  - THERAPY NON-RESPONDER [None]
